FAERS Safety Report 17355502 (Version 3)
Quarter: 2020Q4

REPORT INFORMATION
  Report Type: Spontaneous
  Country: US (occurrence: US)
  Receive Date: 20200131
  Receipt Date: 20201013
  Transmission Date: 20210113
  Serious: No
  Sender: FDA-Public Use
  Company Number: US-VERTEX PHARMACEUTICALS-2020-000222

PATIENT
  Age: 33 Year
  Sex: Male

DRUGS (8)
  1. CREON [Concomitant]
     Active Substance: PANCRELIPASE AMYLASE\PANCRELIPASE LIPASE\PANCRELIPASE PROTEASE
  2. TRIKAFTA [Suspect]
     Active Substance: ELEXACAFTOR\IVACAFTOR\TEZACAFTOR
     Dosage: 2 TABLETS (100MG ELEXACAFTOR/ 50MG TEZACAFTOR/ 75MG IVACAFTOR) AM, 1 TABLET (150MG IVACAFTOR) PM
     Route: 048
     Dates: start: 202002
  3. BROVANA [Concomitant]
     Active Substance: ARFORMOTEROL TARTRATE
  4. TRIKAFTA [Suspect]
     Active Substance: ELEXACAFTOR\IVACAFTOR\TEZACAFTOR
     Dosage: REDUCED DOSE
     Route: 048
     Dates: start: 202001, end: 20200118
  5. HYPERSAL [Concomitant]
     Active Substance: SODIUM CHLORIDE
  6. PULMOZYME [Concomitant]
     Active Substance: DORNASE ALFA
  7. PROAIR HFA [Concomitant]
     Active Substance: ALBUTEROL SULFATE
  8. TRIKAFTA [Suspect]
     Active Substance: ELEXACAFTOR\IVACAFTOR\TEZACAFTOR
     Indication: CYSTIC FIBROSIS
     Dosage: 2 TABS (100MG ELEXACAFTOR/50MG TEZACAFTOR/75 MG IVACAFTOR) AM; 1 TAB (150MG IVACAFTOR)PM
     Route: 048
     Dates: start: 20200102, end: 202001

REACTIONS (6)
  - Dyspnoea [Recovered/Resolved]
  - Gait disturbance [Unknown]
  - Nasopharyngitis [Unknown]
  - Chest discomfort [Not Recovered/Not Resolved]
  - Extra dose administered [Unknown]
  - Insomnia [Unknown]

NARRATIVE: CASE EVENT DATE: 202001
